FAERS Safety Report 19888175 (Version 1)
Quarter: 2021Q3

REPORT INFORMATION
  Report Type: Spontaneous
  Country: NL (occurrence: NL)
  Receive Date: 20210928
  Receipt Date: 20210928
  Transmission Date: 20211014
  Serious: Yes (Other)
  Sender: FDA-Public Use
  Company Number: NL-AUROBINDO-AUR-APL-2021-040181

PATIENT
  Sex: Male
  Weight: 15.9 kg

DRUGS (1)
  1. CLONIDINE HCL 0.025 MG  TABLET [Suspect]
     Active Substance: CLONIDINE
     Indication: PRODUCT USED FOR UNKNOWN INDICATION
     Dosage: 0.02 MILLIGRAM, ONCE A DAY
     Route: 065
     Dates: start: 20210909

REACTIONS (2)
  - Hypotension [Recovered/Resolved]
  - Respiratory depression [Recovered/Resolved]
